FAERS Safety Report 25049184 (Version 2)
Quarter: 2025Q1

REPORT INFORMATION
  Report Type: Spontaneous
  Country: US (occurrence: US)
  Receive Date: 20250307
  Receipt Date: 20250310
  Transmission Date: 20250409
  Serious: No
  Sender: BIOVITRUM
  Company Number: US-BIOVITRUM-2025-US-002524

PATIENT
  Age: 33 Year
  Sex: Male

DRUGS (2)
  1. KINERET [Suspect]
     Active Substance: ANAKINRA
     Indication: Connective tissue disorder
     Route: 058
  2. KINERET [Suspect]
     Active Substance: ANAKINRA
     Indication: Haploinsufficiency of A20
     Dates: start: 202401

REACTIONS (6)
  - Connective tissue disorder [Unknown]
  - Condition aggravated [Unknown]
  - Off label use [Not Recovered/Not Resolved]
  - Product use issue [Unknown]
  - Intentional product misuse [Not Recovered/Not Resolved]
  - General physical health deterioration [Unknown]

NARRATIVE: CASE EVENT DATE: 20240101
